FAERS Safety Report 5290977-7 (Version None)
Quarter: 2007Q2

REPORT INFORMATION
  Report Type: 
  Country: None (occurrence: None)
  Receive Date: 20070409
  Receipt Date: 20070330
  Transmission Date: 20071010
  Serious: Yes (Death)
  Sender: FDA-Public Use
  Company Number: RU-ROCHE-490829

PATIENT
  Age: 65 Year
  Sex: Male

DRUGS (2)
  1. XELODA [Suspect]
     Indication: COLON CANCER METASTATIC
     Dosage: THIRD CYCLE OF TREATMENT. FOR TWO WEEKS.
     Route: 048
     Dates: end: 20060815
  2. XELODA [Suspect]
     Dosage: FOR TWO WEEKS.  FIRST CYCLE OF TREATMENT.
     Route: 048

REACTIONS (2)
  - ANGINA PECTORIS [None]
  - INTESTINAL OBSTRUCTION [None]
